FAERS Safety Report 6687603-9 (Version None)
Quarter: 2010Q2

REPORT INFORMATION
  Report Type: 
  Country: None (occurrence: None)
  Receive Date: 20100416
  Receipt Date: 20100416
  Transmission Date: 20101027
  Serious: Yes (Hospitalization)
  Sender: FDA-Public Use
  Company Number: None

PATIENT
  Age: 9 Year
  Sex: Male
  Weight: 24.9478 kg

DRUGS (3)
  1. CITALOPRAM HYDROBROMIDE [Suspect]
     Indication: ANXIETY
     Dosage: 30 MG. ONCE A DAY PO
     Route: 048
     Dates: start: 20090401, end: 20100412
  2. CITALOPRAM HYDROBROMIDE [Suspect]
     Indication: DEPRESSION
     Dosage: 30 MG. ONCE A DAY PO
     Route: 048
     Dates: start: 20090401, end: 20100412
  3. OMEPRAZOLE [Suspect]
     Indication: GASTROOESOPHAGEAL REFLUX DISEASE
     Dosage: 20 MG. ONCE A DAY PO
     Route: 048
     Dates: start: 20100305, end: 20100305

REACTIONS (7)
  - ABNORMAL BEHAVIOUR [None]
  - ANGER [None]
  - ANTIDEPRESSANT DRUG LEVEL INCREASED [None]
  - ASPHYXIA [None]
  - INHIBITORY DRUG INTERACTION [None]
  - IRRITABILITY [None]
  - SELF INJURIOUS BEHAVIOUR [None]
